FAERS Safety Report 8092086-0 (Version None)
Quarter: 2012Q1

REPORT INFORMATION
  Report Type: 
  Country: None (occurrence: None)
  Receive Date: 20120129
  Receipt Date: 20111109
  Transmission Date: 20120608
  Serious: Yes (Hospitalization)
  Sender: FDA-Public Use
  Company Number: US-ABBOTT-11P-163-0873068-00

PATIENT
  Sex: Male
  Weight: 122.58 kg

DRUGS (7)
  1. CRESTOR [Concomitant]
     Indication: LIPIDS INCREASED
  2. SYNTHROID [Concomitant]
     Indication: HYPOTHYROIDISM
     Dates: start: 20111101
  3. ZETIA [Concomitant]
     Indication: LIPIDS INCREASED
  4. SULFAZINE [Concomitant]
     Indication: RHEUMATOID ARTHRITIS
     Dates: start: 20110501
  5. HUMIRA [Suspect]
     Indication: RHEUMATOID ARTHRITIS
     Dates: start: 20020101
  6. METHOTREXATE [Suspect]
     Indication: RHEUMATOID ARTHRITIS
  7. FLOMAX [Concomitant]
     Indication: POLLAKIURIA

REACTIONS (4)
  - HYPOTHYROIDISM [None]
  - DYSPNOEA [None]
  - PULMONARY MYCOSIS [None]
  - RHEUMATOID ARTHRITIS [None]
